FAERS Safety Report 20311106 (Version 1)
Quarter: 2022Q1

REPORT INFORMATION
  Report Type: Spontaneous
  Country: IN (occurrence: IN)
  Receive Date: 20220107
  Receipt Date: 20220107
  Transmission Date: 20220424
  Serious: Yes (Other)
  Sender: FDA-Public Use
  Company Number: IN-NOVARTISPH-NVSC2022IN001132

PATIENT
  Age: 13 Year
  Sex: Female

DRUGS (4)
  1. CYCLOSPORINE [Interacting]
     Active Substance: CYCLOSPORINE
     Indication: Bone marrow transplant
     Dosage: UNK
     Route: 065
  2. CYCLOSPORINE [Interacting]
     Active Substance: CYCLOSPORINE
     Indication: Immunosuppressant drug therapy
  3. CIPROFLOXACIN [Interacting]
     Active Substance: CIPROFLOXACIN
     Indication: Renal abscess
     Dosage: UNK
     Route: 065
  4. LINEZOLID [Concomitant]
     Active Substance: LINEZOLID
     Indication: Renal abscess
     Dosage: UNK
     Route: 065

REACTIONS (3)
  - Toxic leukoencephalopathy [Recovered/Resolved]
  - Multiple organ dysfunction syndrome [Unknown]
  - Drug interaction [Unknown]
